FAERS Safety Report 4639560-4 (Version None)
Quarter: 2005Q2

REPORT INFORMATION
  Report Type: 
  Country: None (occurrence: None)
  Receive Date: 20050328
  Receipt Date: 20050210
  Transmission Date: 20051028
  Serious: No
  Sender: FDA-Public Use
  Company Number: USA050290542

PATIENT
  Sex: Male

DRUGS (1)
  1. STRATTERA [Suspect]

REACTIONS (1)
  - CONJUNCTIVITIS [None]
